FAERS Safety Report 11844680 (Version 1)
Quarter: 2015Q4

REPORT INFORMATION
  Report Type: Spontaneous
  Country: CA (occurrence: CA)
  Receive Date: 20151217
  Receipt Date: 20151217
  Transmission Date: 20160305
  Serious: Yes (Life-Threatening)
  Sender: FDA-Public Use
  Company Number: CA-TEVA-619225ACC

PATIENT
  Age: 68 Year
  Sex: Female
  Weight: 126.67 kg

DRUGS (1)
  1. LOSARTAN. [Suspect]
     Active Substance: LOSARTAN
     Indication: BLOOD PRESSURE MEASUREMENT
     Dosage: 50 MILLIGRAM DAILY;
     Route: 048

REACTIONS (3)
  - Loss of consciousness [Recovered/Resolved]
  - Product substitution issue [Recovered/Resolved]
  - Dizziness [Recovered/Resolved]
